FAERS Safety Report 17121850 (Version 2)
Quarter: 2019Q4

REPORT INFORMATION
  Report Type: Report from Study
  Country: CN (occurrence: CN)
  Receive Date: 20191206
  Receipt Date: 20191219
  Transmission Date: 20200122
  Serious: Yes (Other)
  Sender: FDA-Public Use
  Company Number: NVSC2019CN060889

PATIENT
  Age: 25 Year
  Sex: Male

DRUGS (27)
  1. HUMAN ALBUMIN [Concomitant]
     Active Substance: ALBUMIN HUMAN
     Indication: BLOOD ALBUMIN DECREASED
     Dosage: 2500 MG, QD
     Route: 042
     Dates: start: 20160619, end: 20160619
  2. INSULIN [Concomitant]
     Active Substance: INSULIN NOS
     Dosage: 24 U, BID
     Route: 042
     Dates: start: 20160619, end: 20160619
  3. MYFORTIC [Suspect]
     Active Substance: MYCOPHENOLATE SODIUM
     Dosage: 1440 MG, QD
     Route: 065
     Dates: start: 20160712, end: 20160914
  4. MYFORTIC [Suspect]
     Active Substance: MYCOPHENOLATE SODIUM
     Dosage: 1260 MG, QD
     Route: 065
     Dates: start: 20160915, end: 20160921
  5. MYFORTIC [Suspect]
     Active Substance: MYCOPHENOLATE SODIUM
     Dosage: 1080 MG, QD
     Route: 065
     Dates: start: 20160922, end: 20160925
  6. BASILIXIMAB [Suspect]
     Active Substance: BASILIXIMAB
     Indication: PRODUCT USED FOR UNKNOWN INDICATION
     Dosage: 20 MG, QD
     Route: 065
     Dates: start: 20160618, end: 20160618
  7. CALCIUM GLUCONATE. [Concomitant]
     Active Substance: CALCIUM GLUCONATE
     Indication: MINERAL SUPPLEMENTATION
     Dosage: 2 G, QD
     Route: 042
     Dates: start: 20160619, end: 20160619
  8. MYFORTIC [Suspect]
     Active Substance: MYCOPHENOLATE SODIUM
     Dosage: 1440 MG, QD
     Route: 065
     Dates: start: 20160619, end: 20160707
  9. MYFORTIC [Suspect]
     Active Substance: MYCOPHENOLATE SODIUM
     Dosage: 900 MG, QD
     Route: 065
     Dates: start: 20161020, end: 20161024
  10. REDUCED GLUTATHIONE SODIUM [Concomitant]
     Active Substance: GLUTATHIONE
     Indication: RENAL TUBULAR DISORDER
     Dosage: 2400 MG, QD
     Route: 042
     Dates: start: 20160618, end: 20160621
  11. RABEPRAZOL [Concomitant]
     Active Substance: RABEPRAZOLE
     Indication: PROPHYLAXIS AGAINST GASTROINTESTINAL ULCER
     Dosage: 20 MG, BID
     Route: 042
     Dates: start: 20160608, end: 20160704
  12. DOPAMINE HYDROCHLORIDE. [Concomitant]
     Active Substance: DOPAMINE HYDROCHLORIDE
     Indication: BLOOD PRESSURE INCREASED
     Dosage: 160 MG, QD
     Route: 042
     Dates: start: 20160619, end: 20160619
  13. MYFORTIC [Suspect]
     Active Substance: MYCOPHENOLATE SODIUM
     Dosage: 720 MG, QD
     Route: 065
     Dates: start: 20161006, end: 20161019
  14. BASILIXIMAB [Suspect]
     Active Substance: BASILIXIMAB
     Dosage: 20 MG, QD
     Route: 065
     Dates: start: 20160622, end: 20160622
  15. CEFODIZIME DISODIUM [Concomitant]
     Active Substance: CEFODIZIME SODIUM
     Indication: INFECTION
     Dosage: 2000 MG, BID
     Route: 065
     Dates: start: 20160618, end: 20160705
  16. ULINASTATIN [Concomitant]
     Active Substance: ULINASTATIN
     Indication: RENAL TUBULAR DISORDER
     Dosage: 1075 U, BID
     Route: 042
     Dates: start: 20160618, end: 20160702
  17. MYFORTIC [Suspect]
     Active Substance: MYCOPHENOLATE SODIUM
     Dosage: 1080 MG, QD
     Route: 065
     Dates: start: 20161025, end: 20161103
  18. AMBROXOL HYDROCHLORIDE [Concomitant]
     Active Substance: AMBROXOL HYDROCHLORIDE
     Indication: PRODUCTIVE COUGH
     Dosage: 90 MG, BID
     Route: 042
     Dates: start: 20160618, end: 20160630
  19. AMBROXOL HYDROCHLORIDE [Concomitant]
     Active Substance: AMBROXOL HYDROCHLORIDE
     Indication: PROPHYLAXIS
  20. INSULIN [Concomitant]
     Active Substance: INSULIN NOS
     Indication: BLOOD GLUCOSE INCREASED
     Dosage: 30 U, QD
     Route: 042
     Dates: start: 20160619, end: 20160619
  21. FUROSEMIDE. [Concomitant]
     Active Substance: FUROSEMIDE
     Dosage: 80 MG, QD
     Route: 042
     Dates: start: 20160619, end: 20160619
  22. MYFORTIC [Suspect]
     Active Substance: MYCOPHENOLATE SODIUM
     Dosage: 900 MG, QD
     Route: 065
     Dates: start: 20160926, end: 20161005
  23. COENZYME I [Concomitant]
     Indication: CARDIAC DISORDER
     Dosage: 5 MG, BID
     Route: 042
     Dates: start: 20160619, end: 20160619
  24. MYFORTIC [Suspect]
     Active Substance: MYCOPHENOLATE SODIUM
     Indication: PRODUCT USED FOR UNKNOWN INDICATION
     Dosage: 720 MG, QD
     Route: 065
     Dates: start: 20160618, end: 20160618
  25. MYFORTIC [Suspect]
     Active Substance: MYCOPHENOLATE SODIUM
     Dosage: 1260 MG, QD
     Route: 065
     Dates: start: 20160708, end: 20160711
  26. HUMAN ALBUMIN [Concomitant]
     Active Substance: ALBUMIN HUMAN
     Indication: BLOOD VOLUME EXPANSION
     Dosage: 25 G, BID
     Route: 042
     Dates: start: 20160619, end: 20160619
  27. FUROSEMIDE. [Concomitant]
     Active Substance: FUROSEMIDE
     Indication: DIURETIC THERAPY
     Dosage: 40 MG, BID
     Route: 065
     Dates: start: 20160619, end: 20160619

REACTIONS (1)
  - Delayed graft function [Recovered/Resolved with Sequelae]

NARRATIVE: CASE EVENT DATE: 20160619
